FAERS Safety Report 5821980-3 (Version None)
Quarter: 2008Q3

REPORT INFORMATION
  Report Type: 
  Country: None (occurrence: None)
  Receive Date: 20080724
  Receipt Date: 20080716
  Transmission Date: 20090109
  Serious: Yes (Hospitalization)
  Sender: FDA-Public Use
  Company Number: JP-MERCK-0805USA02103

PATIENT
  Age: 76 Year
  Sex: Male
  Weight: 71 kg

DRUGS (6)
  1. COZAAR [Suspect]
     Indication: HYPERTENSION
     Route: 048
     Dates: end: 20080507
  2. WARFARIN POTASSIUM [Concomitant]
     Indication: CEREBRAL INFARCTION
     Route: 048
  3. CLARITIN [Concomitant]
     Route: 048
  4. ALFAROL [Concomitant]
     Indication: OSTEOPOROSIS
     Route: 048
  5. URINORM [Concomitant]
     Indication: HYPERURICAEMIA
     Route: 048
  6. MAGNESIUM OXIDE [Concomitant]
     Indication: CONSTIPATION
     Route: 048

REACTIONS (2)
  - BLOOD CREATINE PHOSPHOKINASE INCREASED [None]
  - RENAL IMPAIRMENT [None]
